FAERS Safety Report 9570763 (Version 1)
Quarter: 2013Q4

REPORT INFORMATION
  Report Type: Spontaneous
  Country: ME (occurrence: ME)
  Receive Date: 20131001
  Receipt Date: 20131001
  Transmission Date: 20140711
  Serious: Yes (Death, Hospitalization)
  Sender: FDA-Public Use
  Company Number: ME-ROCHE-1282838

PATIENT
  Age: 50 Year
  Sex: Male
  Weight: 84.5 kg

DRUGS (3)
  1. MIRCERA [Suspect]
     Indication: NEPHROGENIC ANAEMIA
     Route: 058
     Dates: start: 20130305, end: 20130906
  2. ACTRAPID [Concomitant]
     Indication: DIABETES MELLITUS
     Route: 058
  3. MANNITOL [Concomitant]

REACTIONS (1)
  - Diabetic coma [Fatal]
